FAERS Safety Report 21977305 (Version 1)
Quarter: 2023Q1

REPORT INFORMATION
  Report Type: Spontaneous
  Country: DE (occurrence: None)
  Receive Date: 20230210
  Receipt Date: 20230210
  Transmission Date: 20230418
  Serious: Yes (Other)
  Sender: FDA-Public Use
  Company Number: DE-ROCHE-3282444

PATIENT
  Sex: Male

DRUGS (10)
  1. MABTHERA [Suspect]
     Active Substance: RITUXIMAB
     Indication: Diffuse large B-cell lymphoma
     Dosage: R-CHOP
     Route: 065
     Dates: start: 20201201, end: 20210601
  2. MABTHERA [Suspect]
     Active Substance: RITUXIMAB
     Dosage: RITUXIMAB-BENDAMUSTINE-POLATUZUMAB
     Route: 065
     Dates: start: 20211001, end: 20211201
  3. MABTHERA [Suspect]
     Active Substance: RITUXIMAB
     Dosage: R-GEM-OX
     Route: 065
     Dates: start: 202207, end: 20221001
  4. POLIVY [Suspect]
     Active Substance: POLATUZUMAB VEDOTIN-PIIQ
     Indication: Diffuse large B-cell lymphoma
     Dosage: RITUXIMAB-BENDAMUSTINE-POLATUZUMAB
     Route: 065
     Dates: start: 20211001, end: 20211201
  5. CYCLOPHOSPHAMIDE\DOXORUBICIN\PREDNISONE\VINCRISTINE [Suspect]
     Active Substance: CYCLOPHOSPHAMIDE\DOXORUBICIN\PREDNISONE\VINCRISTINE
     Indication: Diffuse large B-cell lymphoma
     Dosage: R-CHOP
     Route: 065
     Dates: start: 20201201, end: 20210601
  6. BENDAMUSTINE [Suspect]
     Active Substance: BENDAMUSTINE
     Indication: Diffuse large B-cell lymphoma
     Dosage: RITUXIMAB-BENDAMUSTINE-POLATUZUMAB
     Route: 065
     Dates: start: 20211001, end: 20211201
  7. TAFASITAMAB-CXIX [Suspect]
     Active Substance: TAFASITAMAB-CXIX
     Indication: Diffuse large B-cell lymphoma
     Dosage: TAFASITAMAB WITH LENALIDOMIDE
     Route: 065
     Dates: start: 20220501, end: 20220701
  8. LENALIDOMIDE [Suspect]
     Active Substance: LENALIDOMIDE
     Indication: Diffuse large B-cell lymphoma
     Dosage: TAFASITAMAB WITH LENALIDOMIDE
     Route: 065
     Dates: start: 20220501, end: 20220701
  9. GEMCITABINE [Suspect]
     Active Substance: GEMCITABINE
     Indication: Diffuse large B-cell lymphoma
     Dosage: R-GEM-OX
     Route: 065
     Dates: start: 202207, end: 20221001
  10. OXALIPLATIN [Suspect]
     Active Substance: OXALIPLATIN
     Indication: Diffuse large B-cell lymphoma
     Dosage: R-GEM-OX
     Route: 065
     Dates: start: 202207, end: 20221001

REACTIONS (1)
  - Lymphoma [Not Recovered/Not Resolved]
